FAERS Safety Report 4830420-2 (Version None)
Quarter: 2005Q4

REPORT INFORMATION
  Report Type: 
  Country: None (occurrence: None)
  Receive Date: 20051114
  Receipt Date: 20050930
  Transmission Date: 20060501
  Serious: Yes (Death)
  Sender: FDA-Public Use
  Company Number: 2005AL003917

PATIENT
  Age: 40 Year

DRUGS (3)
  1. TRAZODONE HCL [Suspect]
  2. SPRAY PAINT [Suspect]
  3. AMPHETAMINE SULFATE [Suspect]

REACTIONS (4)
  - CARDIAC ARREST [None]
  - INTENTIONAL DRUG MISUSE [None]
  - MULTIPLE DRUG OVERDOSE [None]
  - RESPIRATORY ARREST [None]
